FAERS Safety Report 22239035 (Version 3)
Quarter: 2023Q2

REPORT INFORMATION
  Report Type: Spontaneous
  Country: GB (occurrence: GB)
  Receive Date: 20230421
  Receipt Date: 20230529
  Transmission Date: 20230722
  Serious: Yes (Other)
  Sender: FDA-Public Use
  Company Number: GB-PFIZER INC-PV202300064097

PATIENT
  Age: 65 Year
  Sex: Female

DRUGS (5)
  1. DEXAMETHASONE SODIUM PHOSPHATE [Suspect]
     Active Substance: DEXAMETHASONE SODIUM PHOSPHATE
     Indication: Plasma cell myeloma
     Dosage: 20 MG, EVERY 2 DAYS,
     Route: 065
  2. LENALIDOMIDE [Suspect]
     Active Substance: LENALIDOMIDE
     Indication: Product used for unknown indication
     Route: 065
  3. CYCLOPHOSPHAMIDE [Suspect]
     Active Substance: CYCLOPHOSPHAMIDE
     Indication: Product used for unknown indication
     Route: 065
  4. DARZALEX [Suspect]
     Active Substance: DARATUMUMAB
     Indication: Product used for unknown indication
     Route: 065
  5. VELCADE [Suspect]
     Active Substance: BORTEZOMIB
     Indication: Product used for unknown indication
     Route: 065

REACTIONS (18)
  - Immunosuppression [Unknown]
  - Sepsis [Unknown]
  - Thrombosis [Unknown]
  - Steroid diabetes [Unknown]
  - Neuropathy peripheral [Unknown]
  - C-reactive protein increased [Unknown]
  - Drug ineffective [Unknown]
  - Insomnia [Unknown]
  - Fatigue [Unknown]
  - Feeling abnormal [Unknown]
  - Pyrexia [Unknown]
  - Urinary tract infection [Unknown]
  - Herpes zoster [Unknown]
  - Lower respiratory tract infection [Unknown]
  - Chills [Unknown]
  - Weight increased [Unknown]
  - Psychiatric symptom [Unknown]
  - Malaise [Unknown]
